FAERS Safety Report 19257448 (Version 1)
Quarter: 2021Q2

REPORT INFORMATION
  Report Type: Spontaneous
  Country: DE (occurrence: DE)
  Receive Date: 20210513
  Receipt Date: 20210513
  Transmission Date: 20210717
  Serious: Yes (Other)
  Sender: FDA-Public Use
  Company Number: DE-ESPERIONTHERAPEUTICS-2021DEU00944

PATIENT
  Age: 72 Year
  Sex: Male

DRUGS (3)
  1. PREDNISOLON [PREDNISOLONE] [Concomitant]
     Active Substance: PREDNISOLONE
     Indication: PRODUCT USED FOR UNKNOWN INDICATION
     Dosage: UNK
     Route: 065
  2. NILEMDO [Suspect]
     Active Substance: BEMPEDOIC ACID
     Indication: DYSLIPIDAEMIA
     Dosage: 180 MG, QD
     Route: 048
     Dates: start: 202011, end: 20201216
  3. NUSTENDI [Suspect]
     Active Substance: BEMPEDOIC ACID\EZETIMIBE
     Indication: DYSLIPIDAEMIA
     Dosage: 180/10 MG, QD
     Route: 048
     Dates: start: 20201216, end: 202104

REACTIONS (1)
  - Hepatitis [Unknown]

NARRATIVE: CASE EVENT DATE: 202104
